FAERS Safety Report 16041674 (Version 1)
Quarter: 2019Q1

REPORT INFORMATION
  Report Type: Spontaneous
  Country: US (occurrence: US)
  Receive Date: 20190306
  Receipt Date: 20190306
  Transmission Date: 20190418
  Serious: No
  Sender: FDA-Public Use
  Company Number: US-AKORN PHARMACEUTICALS-2018AKN01257

PATIENT
  Sex: Female
  Weight: 54.88 kg

DRUGS (4)
  1. MYORISAN [Suspect]
     Active Substance: ISOTRETINOIN
     Dosage: 20 MG, 2X/DAY ^AM AND PM^
     Route: 048
     Dates: start: 20180730
  2. MYORISAN [Suspect]
     Active Substance: ISOTRETINOIN
     Indication: ACNE
     Dosage: 40 MG, 1X/DAY ^AM^
     Route: 048
     Dates: start: 20180711, end: 20180730
  3. MYORISAN [Suspect]
     Active Substance: ISOTRETINOIN
     Dosage: 20 MG, 1X/DAY ^PM^
     Route: 048
     Dates: start: 20180711, end: 20180730
  4. UNSPECIFIED ORAL CONTRACEPTIVE [Concomitant]

REACTIONS (2)
  - Skin fissures [Recovering/Resolving]
  - Lip dry [Recovering/Resolving]

NARRATIVE: CASE EVENT DATE: 2018
